FAERS Safety Report 6123800-9 (Version None)
Quarter: 2009Q1

REPORT INFORMATION
  Report Type: 
  Country: None (occurrence: None)
  Receive Date: 20090317
  Receipt Date: 20090317
  Transmission Date: 20090719
  Serious: Yes (Other)
  Sender: FDA-Public Use
  Company Number: None

PATIENT
  Age: 30 Year
  Sex: Female

DRUGS (1)
  1. OTRIVIN [Suspect]
     Indication: SINUS DISORDER
     Dosage: 4-5 TIMES A DAY, DAILY, NASAL
     Route: 045

REACTIONS (2)
  - DRUG EXPOSURE DURING PREGNANCY [None]
  - INTENTIONAL DRUG MISUSE [None]
